FAERS Safety Report 5909548-1 (Version None)
Quarter: 2008Q4

REPORT INFORMATION
  Report Type: 
  Country: None (occurrence: None)
  Receive Date: 20081006
  Receipt Date: 20080924
  Transmission Date: 20090506
  Serious: Yes (Death)
  Sender: FDA-Public Use
  Company Number: JP-ABBOTT-08P-087-0479991-00

PATIENT
  Age: 79 Year
  Sex: Male

DRUGS (6)
  1. LEUPROLIDE ACETATE [Suspect]
     Indication: PROSTATE CANCER STAGE III
     Route: 058
     Dates: start: 20060613, end: 20080122
  2. LEUPROLIDE ACETATE [Suspect]
     Route: 058
     Dates: end: 20060516
  3. URSODIOL [Concomitant]
     Indication: HEPATIC NEOPLASM MALIGNANT
     Route: 048
     Dates: end: 20080229
  4. GLYCYRRHIZINATE POTASSIUM [Concomitant]
     Indication: HEPATIC NEOPLASM MALIGNANT
     Route: 048
     Dates: start: 20061011, end: 20080229
  5. RABEPRAZOLE SODIUM [Concomitant]
     Indication: GASTRIC ULCER
     Route: 048
     Dates: end: 20070106
  6. OMEPRAZOLE SODIUM [Concomitant]
     Indication: GASTRIC ULCER
     Route: 048
     Dates: start: 20070117, end: 20080229

REACTIONS (2)
  - HEPATIC NEOPLASM MALIGNANT [None]
  - INJECTION SITE INDURATION [None]
